FAERS Safety Report 10066652 (Version 1)
Quarter: 2014Q2

REPORT INFORMATION
  Report Type: Spontaneous
  Country: US (occurrence: US)
  Receive Date: 20140408
  Receipt Date: 20140408
  Transmission Date: 20141212
  Serious: Yes (Death, Hospitalization, Other)
  Sender: FDA-Public Use
  Company Number: US-GILEAD-2014-0099046

PATIENT
  Age: 57 Year
  Sex: Male

DRUGS (3)
  1. SOVALDI [Suspect]
     Indication: HEPATITIS C
     Route: 065
  2. PEG INTRON [Concomitant]
  3. RIBAVIRIN [Concomitant]

REACTIONS (3)
  - Death [Fatal]
  - Anaemia [Unknown]
  - Pneumonia [Unknown]
